FAERS Safety Report 25189800 (Version 1)
Quarter: 2025Q2

REPORT INFORMATION
  Report Type: Spontaneous
  Country: FR (occurrence: FR)
  Receive Date: 20250411
  Receipt Date: 20250411
  Transmission Date: 20250716
  Serious: Yes (Other)
  Sender: REGENERON
  Company Number: FR-SANOFI-01969478

PATIENT
  Age: 54 Year
  Sex: Male

DRUGS (10)
  1. PRALUENT [Suspect]
     Active Substance: ALIROCUMAB
     Indication: Cardiac disorder
     Dosage: 300 MG, QM
     Route: 065
     Dates: start: 20231231
  2. BISOPROLOL [Concomitant]
     Active Substance: BISOPROLOL
     Indication: Product used for unknown indication
  3. BISOPROLOL [Concomitant]
     Active Substance: BISOPROLOL
  4. BISOPROLOL [Concomitant]
     Active Substance: BISOPROLOL
  5. EZETIMIBE [Concomitant]
     Active Substance: EZETIMIBE
     Indication: Product used for unknown indication
  6. EZETIMIBE [Concomitant]
     Active Substance: EZETIMIBE
  7. EZETIMIBE [Concomitant]
     Active Substance: EZETIMIBE
  8. KARDEGIC [Concomitant]
     Active Substance: ASPIRIN DL-LYSINE
     Indication: Product used for unknown indication
  9. KARDEGIC [Concomitant]
     Active Substance: ASPIRIN DL-LYSINE
  10. KARDEGIC [Concomitant]
     Active Substance: ASPIRIN DL-LYSINE

REACTIONS (11)
  - Cerebrovascular accident [Unknown]
  - Infarction [Unknown]
  - Gastrointestinal disorder [Recovered/Resolved]
  - Rash macular [Recovered/Resolved]
  - Headache [Recovered/Resolved]
  - Hyperhidrosis [Unknown]
  - Feeling hot [Unknown]
  - Discomfort [Unknown]
  - Fatigue [Unknown]
  - Pruritus [Recovered/Resolved]
  - Poor quality product administered [Unknown]

NARRATIVE: CASE EVENT DATE: 20240115
